FAERS Safety Report 5217042-9 (Version None)
Quarter: 2007Q1

REPORT INFORMATION
  Report Type: 
  Country: None (occurrence: None)
  Receive Date: 20070124
  Receipt Date: 20070122
  Transmission Date: 20070707
  Serious: Yes (Hospitalization, Other)
  Sender: FDA-Public Use
  Company Number: MC-AVENTIS-200710129EU

PATIENT
  Age: 61 Year
  Sex: Male

DRUGS (11)
  1. ENOXAPARIN SODIUM [Suspect]
     Route: 058
     Dates: start: 20061121, end: 20061214
  2. CELESTENE                          /00008501/ [Concomitant]
     Route: 048
     Dates: start: 20061125, end: 20061212
  3. KESTIN [Concomitant]
     Route: 048
     Dates: start: 20061121, end: 20061205
  4. DIPROSONE                          /00008504/ [Concomitant]
     Indication: ECZEMA
     Route: 003
     Dates: start: 20061123, end: 20061201
  5. INEGY [Concomitant]
     Route: 048
     Dates: start: 20000101
  6. TAREG [Concomitant]
     Indication: HYPERTENSION
     Route: 048
     Dates: start: 20000101
  7. ANAFRANIL [Concomitant]
     Route: 048
     Dates: start: 20000101
  8. NEXIUM [Concomitant]
     Route: 048
     Dates: start: 20000101
  9. BROMAZEPAM [Concomitant]
     Route: 048
     Dates: start: 20000101
  10. ATARAX                             /00058402/ [Concomitant]
     Indication: PREMEDICATION
     Route: 048
     Dates: start: 20061214, end: 20061214
  11. LOVENOX [Concomitant]

REACTIONS (1)
  - HAEMATOMA INFECTION [None]
